FAERS Safety Report 10564695 (Version 1)
Quarter: 2014Q4

REPORT INFORMATION
  Report Type: Report from Study
  Country: ES (occurrence: ES)
  Receive Date: 20141105
  Receipt Date: 20141105
  Transmission Date: 20150529
  Serious: Yes (Hospitalization)
  Sender: FDA-Public Use
  Company Number: ES-ROCHE-1483661

PATIENT
  Age: 76 Year
  Sex: Male
  Weight: 85 kg

DRUGS (7)
  1. METFORMIN [Concomitant]
     Active Substance: METFORMIN HYDROCHLORIDE
     Route: 065
  2. OMEPRAZOLE. [Concomitant]
     Active Substance: OMEPRAZOLE
  3. ENALAPRIL [Concomitant]
     Active Substance: ENALAPRIL
  4. CAPECITABINE. [Suspect]
     Active Substance: CAPECITABINE
     Indication: METASTATIC RENAL CELL CARCINOMA
     Dosage: MOST RECENT DOSE PRIOR TO SAE-26/JAN/2009?FREQUENCY-DAYS 1-14 FOR SIX 21-DAY CYCLES
     Route: 065
     Dates: start: 20090114, end: 20090128
  5. SUNITINIB MALATE [Suspect]
     Active Substance: SUNITINIB MALATE
     Indication: METASTATIC RENAL CELL CARCINOMA
     Dosage: MOST RECENT DOSE PRIOR TO SAE-26/JAN/2009?FREQUENCY-SIX 21-DAY CYCLES
     Route: 048
     Dates: start: 20090114, end: 20090128
  6. GEMCITABINE [Suspect]
     Active Substance: GEMCITABINE\GEMCITABINE HYDROCHLORIDE
     Indication: METASTATIC RENAL CELL CARCINOMA
     Dosage: MOST RECENT DOSE PRIOR TO SAE- 1/JAN/2009?FREQUENCY- ON DAYS 1 AND 8 FOR SIX 21-DAY CYCLES.
     Route: 042
     Dates: start: 20090114, end: 20090128
  7. FUROSEMIDE. [Concomitant]
     Active Substance: FUROSEMIDE

REACTIONS (3)
  - Diarrhoea [Recovered/Resolved]
  - Mucosal inflammation [Recovered/Resolved]
  - Thrombocytopenia [Recovered/Resolved]

NARRATIVE: CASE EVENT DATE: 20090128
